FAERS Safety Report 5694503-X (Version None)
Quarter: 2008Q2

REPORT INFORMATION
  Report Type: 
  Country: None (occurrence: None)
  Receive Date: 20080404
  Receipt Date: 20080326
  Transmission Date: 20081010
  Serious: Yes (Other)
  Sender: FDA-Public Use
  Company Number: US-ELI_LILLY_AND_COMPANY-US200803006281

PATIENT
  Age: 69 Year
  Sex: Male

DRUGS (2)
  1. GEMZAR [Suspect]
     Dosage: UNK, UNK
  2. CISPLATIN [Concomitant]
     Dosage: UNK, UNK

REACTIONS (1)
  - THROMBOCYTHAEMIA [None]
